FAERS Safety Report 7153167-9 (Version None)
Quarter: 2010Q4

REPORT INFORMATION
  Report Type: 
  Country: None (occurrence: None)
  Receive Date: 20101209
  Receipt Date: 20101209
  Transmission Date: 20110411
  Serious: Yes (Other)
  Sender: FDA-Public Use
  Company Number: None

PATIENT
  Age: 43 Year
  Sex: Male
  Weight: 76.2043 kg

DRUGS (4)
  1. HYDROXYZINE HCL [Suspect]
     Indication: PRURITUS
     Dosage: 1/2 TABLET FIRST NIGHT ORALLY; 1 TABLET 2-10TH NIGHT ORALLY
     Route: 048
     Dates: start: 20101118
  2. HYDROXYZINE HCL [Suspect]
     Indication: RASH
     Dosage: 1/2 TABLET FIRST NIGHT ORALLY; 1 TABLET 2-10TH NIGHT ORALLY
     Route: 048
     Dates: start: 20101118
  3. HYDROXYZINE HCL [Suspect]
     Indication: PRURITUS
     Dosage: 1/2 TABLET FIRST NIGHT ORALLY; 1 TABLET 2-10TH NIGHT ORALLY
     Route: 048
     Dates: start: 20101122
  4. HYDROXYZINE HCL [Suspect]
     Indication: RASH
     Dosage: 1/2 TABLET FIRST NIGHT ORALLY; 1 TABLET 2-10TH NIGHT ORALLY
     Route: 048
     Dates: start: 20101122

REACTIONS (4)
  - CHEST PAIN [None]
  - PALPITATIONS [None]
  - SOMNOLENCE [None]
  - VISION BLURRED [None]
